FAERS Safety Report 7406171-7 (Version None)
Quarter: 2011Q2

REPORT INFORMATION
  Report Type: 
  Country: None (occurrence: None)
  Receive Date: 20110405
  Receipt Date: 20110405
  Transmission Date: 20111010
  Serious: Yes (Life-Threatening, Hospitalization, Other)
  Sender: FDA-Public Use
  Company Number: None

PATIENT
  Sex: Female
  Weight: 52.1637 kg

DRUGS (1)
  1. MIRENA [Suspect]
     Indication: CONTRACEPTION
     Dosage: INTRA-UTERINE
     Route: 015
     Dates: start: 20071116, end: 20080107

REACTIONS (10)
  - INFECTION [None]
  - MIGRAINE [None]
  - BLOOD PRESSURE INCREASED [None]
  - SEPSIS [None]
  - CHEST PAIN [None]
  - DEVICE DISLOCATION [None]
  - HEPATOMEGALY [None]
  - SCAR [None]
  - CHOLELITHIASIS [None]
  - FALLOPIAN TUBE OPERATION [None]
